FAERS Safety Report 4992247-0 (Version None)
Quarter: 2006Q2

REPORT INFORMATION
  Report Type: 
  Country: None (occurrence: None)
  Receive Date: 20060504
  Receipt Date: 20060424
  Transmission Date: 20061013
  Serious: Yes (Hospitalization, Disabling)
  Sender: FDA-Public Use
  Company Number: BE-ROCHE-445316

PATIENT
  Age: 43 Year
  Sex: Male
  Weight: 64 kg

DRUGS (5)
  1. FUZEON [Suspect]
     Route: 058
     Dates: start: 20050419
  2. LAMIVUDINE [Concomitant]
  3. ABACAVIR [Concomitant]
  4. TENOFOVIR [Concomitant]
  5. EFAVIRENZ [Concomitant]

REACTIONS (3)
  - LUNG NEOPLASM [None]
  - OSTEONECROSIS [None]
  - TUMOUR HAEMORRHAGE [None]
